FAERS Safety Report 23362325 (Version 1)
Quarter: 2024Q1

REPORT INFORMATION
  Report Type: Spontaneous
  Country: US (occurrence: None)
  Receive Date: 20240102
  Receipt Date: 20240102
  Transmission Date: 20240409
  Serious: Yes (Hospitalization)
  Sender: FDA-Public Use
  Company Number: None

PATIENT
  Sex: Female

DRUGS (5)
  1. OXBRYTA [Suspect]
     Active Substance: VOXELOTOR
     Indication: Sickle cell anaemia with crisis
     Dosage: FREQUENCY : DAILY;?
     Route: 048
     Dates: start: 202110
  2. TRIAMCINOLONE ACET CRN [Concomitant]
  3. LIDOCAINE/PRILOCAINE CRM [Concomitant]
  4. REMODULIN [Concomitant]
  5. C-FORMULATION A TOPICAL [Concomitant]

REACTIONS (1)
  - Sickle cell anaemia with crisis [None]
